FAERS Safety Report 7211459-9 (Version None)
Quarter: 2011Q1

REPORT INFORMATION
  Report Type: 
  Country: None (occurrence: None)
  Receive Date: 20110105
  Receipt Date: 20101214
  Transmission Date: 20110831
  Serious: No
  Sender: FDA-Public Use
  Company Number: US-B.I. PHARMACEUTICALS,INC./RIDGEFIELD-2010-BP-14571BP

PATIENT
  Sex: Female

DRUGS (5)
  1. METOPROLOL [Concomitant]
     Indication: HYPERTENSION
     Dosage: 150 MG
     Dates: start: 20101001
  2. PRADAXA [Suspect]
     Indication: ATRIAL FIBRILLATION
     Dosage: 300 MG
     Route: 048
     Dates: start: 20101206
  3. DILTIAZEM [Concomitant]
     Indication: HYPERTENSION
     Dosage: 540 MG
     Dates: start: 20101001
  4. LASIX [Concomitant]
     Indication: HYPERTENSION
     Dosage: 60 MG
     Dates: start: 20091201
  5. LOSARTAN POTASSIUM [Concomitant]
     Indication: ELECTROLYTE SUBSTITUTION THERAPY
     Dosage: 50 MG
     Dates: start: 20101001

REACTIONS (2)
  - OEDEMA PERIPHERAL [None]
  - VAGINAL HAEMORRHAGE [None]
